FAERS Safety Report 7992886-9 (Version None)
Quarter: 2011Q4

REPORT INFORMATION
  Report Type: 
  Country: None (occurrence: None)
  Receive Date: 20111219
  Receipt Date: 20110419
  Transmission Date: 20120403
  Serious: No
  Sender: FDA-Public Use
  Company Number: US-ASTRAZENECA-2011SE22946

PATIENT
  Age: 789 Month
  Sex: Female

DRUGS (4)
  1. CRESTOR [Suspect]
     Indication: BLOOD CHOLESTEROL INCREASED
     Route: 048
     Dates: start: 20110416
  2. CALCIUM [Concomitant]
     Indication: BONE DISORDER
  3. FISH OIL [Concomitant]
     Indication: CARDIAC DISORDER
  4. VITAMIN D [Concomitant]
     Indication: BONE DISORDER

REACTIONS (2)
  - SLEEP DISORDER [None]
  - BACK PAIN [None]
